FAERS Safety Report 6309872-7 (Version None)
Quarter: 2009Q3

REPORT INFORMATION
  Report Type: 
  Country: None (occurrence: None)
  Receive Date: 20090814
  Receipt Date: 20090807
  Transmission Date: 20100115
  Serious: Yes (Other)
  Sender: FDA-Public Use
  Company Number: GR-AMGEN-UK359294

PATIENT

DRUGS (7)
  1. NEULASTA [Suspect]
     Indication: CHEMOTHERAPY
  2. EPIRUBICIN [Concomitant]
  3. PACLITAXEL [Concomitant]
  4. CYCLOPHOSPHAMIDE [Concomitant]
  5. METHOTREXATE [Concomitant]
  6. FLUOROURACIL [Concomitant]
  7. DOCETAXEL [Concomitant]

REACTIONS (1)
  - NEUTROPENIA [None]
